FAERS Safety Report 7270265-X (Version None)
Quarter: 2011Q1

REPORT INFORMATION
  Report Type: 
  Country: None (occurrence: None)
  Receive Date: 20110202
  Receipt Date: 20110124
  Transmission Date: 20110831
  Serious: Yes (Hospitalization, Other)
  Sender: FDA-Public Use
  Company Number: US-ASTRAZENECA-2011SE04331

PATIENT
  Sex: Female

DRUGS (3)
  1. NEXIUM [Suspect]
     Route: 048
  2. LIPITOR [Concomitant]
  3. PLAVIX [Concomitant]

REACTIONS (4)
  - PAIN [None]
  - CEREBROVASCULAR ACCIDENT [None]
  - INCORRECT DOSE ADMINISTERED [None]
  - CARDIAC OPERATION [None]
